FAERS Safety Report 7835789-2 (Version None)
Quarter: 2011Q4

REPORT INFORMATION
  Report Type: 
  Country: None (occurrence: None)
  Receive Date: 20111024
  Receipt Date: 20111011
  Transmission Date: 20120403
  Serious: Yes (Hospitalization, Other)
  Sender: FDA-Public Use
  Company Number: US-BAYER-200924409NA

PATIENT
  Age: 28 Year
  Sex: Female
  Weight: 60.455 kg

DRUGS (5)
  1. YAZ [Suspect]
     Dosage: 1 DF (DAILY DOSE), QD, ORAL
     Route: 048
  2. PROTONIX [Concomitant]
  3. ACETAMINOPHEN [Concomitant]
  4. YASMIN [Suspect]
     Indication: CONTRACEPTION
     Dosage: 1 DF (DAILY DOSE), QD, ORAL
     Route: 048
     Dates: start: 20060101, end: 20080901
  5. ZOFRAN [Concomitant]
     Indication: NAUSEA

REACTIONS (9)
  - CHOLECYSTITIS CHRONIC [None]
  - CHILLS [None]
  - PAIN [None]
  - VOMITING [None]
  - ABDOMINAL PAIN UPPER [None]
  - BILE DUCT STONE [None]
  - HYPOTHYROIDISM [None]
  - FATIGUE [None]
  - NAUSEA [None]
